FAERS Safety Report 9992861 (Version 1)
Quarter: 2014Q1

REPORT INFORMATION
  Report Type: Report from Study
  Country: US (occurrence: US)
  Receive Date: 20140310
  Receipt Date: 20140310
  Transmission Date: 20141002
  Serious: No
  Sender: FDA-Public Use
  Company Number: US-ABBVIE-13P-163-1154330-00

PATIENT
  Age: 26 Year
  Sex: Female

DRUGS (5)
  1. LUPRON DEPOT [Suspect]
     Indication: ENDOMETRIOSIS
     Dates: start: 20130708
  2. MULTIVITAMIN [Concomitant]
     Indication: PRODUCT USED FOR UNKNOWN INDICATION
     Dosage: DAILY
     Route: 048
  3. DEPO PROVERA [Concomitant]
     Indication: AFFECTIVE DISORDER
  4. BENTYL [Concomitant]
     Indication: IRRITABLE BOWEL SYNDROME
  5. TRAMADOL [Concomitant]
     Indication: ABDOMINAL PAIN

REACTIONS (5)
  - Hot flush [Not Recovered/Not Resolved]
  - Feeling cold [Unknown]
  - Abdominal pain [Unknown]
  - Irritable bowel syndrome [Unknown]
  - Vaginal haemorrhage [Unknown]
